FAERS Safety Report 18284551 (Version 1)
Quarter: 2020Q3

REPORT INFORMATION
  Report Type: Report from Study
  Country: US (occurrence: US)
  Receive Date: 20200918
  Receipt Date: 20200918
  Transmission Date: 20201103
  Serious: Yes (Hospitalization)
  Sender: FDA-Public Use
  Company Number: US-ASTRAZENECA-2020SE87784

PATIENT
  Age: 4689 Day
  Sex: Female
  Weight: 58.5 kg

DRUGS (3)
  1. ZOFRAN [Suspect]
     Active Substance: ONDANSETRON HYDROCHLORIDE
     Route: 065
  2. KOSELUGO [Suspect]
     Active Substance: SELUMETINIB
     Indication: NEUROFIBROMATOSIS
     Route: 048
     Dates: start: 20200620, end: 20200720
  3. CONCERTA [Concomitant]
     Active Substance: METHYLPHENIDATE HYDROCHLORIDE

REACTIONS (12)
  - Gait inability [Unknown]
  - Dysarthria [Unknown]
  - Off label use [Unknown]
  - Alopecia [Unknown]
  - Weight decreased [Unknown]
  - Diarrhoea [Unknown]
  - Menstrual disorder [Unknown]
  - Skin reaction [Not Recovered/Not Resolved]
  - Cerebrovascular accident [Unknown]
  - Hemiplegia [Unknown]
  - Blood pressure increased [Recovering/Resolving]
  - Vomiting [Unknown]
